FAERS Safety Report 9433961 (Version 7)
Quarter: 2014Q1

REPORT INFORMATION
  Report Type: Report from Study
  Country: US (occurrence: US)
  Receive Date: 20130801
  Receipt Date: 20140324
  Transmission Date: 20141002
  Serious: Yes (Hospitalization, Other)
  Sender: FDA-Public Use
  Company Number: US-ROCHE-1249116

PATIENT
  Age: 41 Year
  Sex: Male

DRUGS (7)
  1. PEGASYS [Suspect]
     Indication: CHRONIC HEPATITIS C
     Route: 058
     Dates: start: 20130623
  2. PEGASYS [Suspect]
     Indication: HEPATIC CIRRHOSIS
  3. RIBAVIRIN [Suspect]
     Indication: CHRONIC HEPATITIS C
     Dosage: DAILY DIVIDED DOSES
     Route: 048
     Dates: start: 20130623
  4. RIBAVIRIN [Suspect]
     Indication: HEPATIC CIRRHOSIS
     Dosage: DIVIDED DOSES
     Route: 065
  5. RIBAVIRIN [Suspect]
     Dosage: DIVIDED DOSES
     Route: 065
  6. TELAPREVIR [Suspect]
     Indication: CHRONIC HEPATITIS C
     Dosage: 2 TABLET
     Route: 048
     Dates: start: 20130623
  7. TELAPREVIR [Suspect]
     Indication: HEPATIC CIRRHOSIS

REACTIONS (31)
  - Hepatic function abnormal [Unknown]
  - Blood bilirubin abnormal [Unknown]
  - Ammonia abnormal [Unknown]
  - Ammonia increased [Unknown]
  - Renal failure [Unknown]
  - Anaemia [Unknown]
  - Dehydration [Unknown]
  - Hepatic encephalopathy [Unknown]
  - Asthenia [Unknown]
  - Hepatic pain [Unknown]
  - Decreased appetite [Unknown]
  - Psoriasis [Not Recovered/Not Resolved]
  - Macule [Unknown]
  - Dry skin [Unknown]
  - Skin fissures [Unknown]
  - Pruritus [Unknown]
  - Dry skin [Unknown]
  - Skin fissures [Unknown]
  - Disorientation [Unknown]
  - Pain [Unknown]
  - Weight increased [Unknown]
  - Pyrexia [Unknown]
  - Sinusitis [Not Recovered/Not Resolved]
  - Nasal congestion [Unknown]
  - Nausea [Unknown]
  - Vomiting [Unknown]
  - Headache [Unknown]
  - Fatigue [Unknown]
  - Oropharyngeal pain [Recovered/Resolved]
  - Mass [Unknown]
  - Muscle spasms [Recovering/Resolving]
